FAERS Safety Report 10645935 (Version 1)
Quarter: 2014Q4

REPORT INFORMATION
  Report Type: Spontaneous
  Country: DE (occurrence: None)
  Receive Date: 20141209
  Receipt Date: 20141209
  Transmission Date: 20150529
  Serious: Yes (Other)
  Sender: FDA-Public Use
  Company Number: DE2014GSK026218

PATIENT
  Age: 34 Year
  Sex: Male
  Weight: 70 kg

DRUGS (2)
  1. KIVEXA [Suspect]
     Active Substance: ABACAVIR SULFATE\LAMIVUDINE
     Indication: HIV INFECTION
     Dates: start: 201405, end: 20141114
  2. DOLUTEGRAVIR (DOLUTEGRAVIR) UNKNOWN [Suspect]
     Active Substance: DOLUTEGRAVIR
     Indication: HIV INFECTION
     Dates: start: 201405, end: 20141114

REACTIONS (2)
  - Bone infarction [None]
  - Bone marrow ischaemia [None]

NARRATIVE: CASE EVENT DATE: 20141028
